APPROVED DRUG PRODUCT: PENTASA
Active Ingredient: MESALAMINE
Strength: 500MG
Dosage Form/Route: CAPSULE, EXTENDED RELEASE;ORAL
Application: N020049 | Product #002 | TE Code: AB
Applicant: TAKEDA PHARMACEUTICALS USA INC
Approved: Jul 8, 2004 | RLD: Yes | RS: Yes | Type: RX